FAERS Safety Report 6807268-2 (Version None)
Quarter: 2010Q2

REPORT INFORMATION
  Report Type: 
  Country: None (occurrence: None)
  Receive Date: 20100629
  Receipt Date: 20080801
  Transmission Date: 20101027
  Serious: Yes (Other)
  Sender: FDA-Public Use
  Company Number: US-PFIZER INC-2008064585

PATIENT

DRUGS (1)
  1. CARDURA [Suspect]

REACTIONS (1)
  - FLOPPY IRIS SYNDROME [None]
